FAERS Safety Report 8998977 (Version 1)
Quarter: 2013Q1

REPORT INFORMATION
  Report Type: Spontaneous
  Country: US (occurrence: US)
  Receive Date: 20130103
  Receipt Date: 20130103
  Transmission Date: 20140127
  Serious: No
  Sender: FDA-Public Use
  Company Number: US-PFIZER INC-2012330412

PATIENT
  Age: 44 Year
  Sex: Female
  Weight: 60.32 kg

DRUGS (2)
  1. PREMARIN [Suspect]
     Indication: VULVOVAGINAL DRYNESS
     Dosage: 0.625 MG, 3X/WEEK
     Route: 067
     Dates: start: 20121220, end: 20121224
  2. TRINESSA [Concomitant]
     Indication: CONTRACEPTION
     Dosage: UNK
     Dates: start: 20121223

REACTIONS (3)
  - Breast pain [Not Recovered/Not Resolved]
  - Discomfort [Not Recovered/Not Resolved]
  - Feeling abnormal [Not Recovered/Not Resolved]
